FAERS Safety Report 24717322 (Version 1)
Quarter: 2024Q4

REPORT INFORMATION
  Report Type: Spontaneous
  Country: US (occurrence: None)
  Receive Date: 20241210
  Receipt Date: 20241210
  Transmission Date: 20250114
  Serious: No
  Sender: Public
  Company Number: None

PATIENT
  Age: 41 Year
  Sex: Female

DRUGS (1)
  1. STELARA [Suspect]
     Active Substance: USTEKINUMAB
     Dosage: OTHER FREQUENCY : EVERY8WEEKS;?
     Route: 042
     Dates: start: 202309

REACTIONS (4)
  - Product storage error [None]
  - Liquid product physical issue [None]
  - Product use issue [None]
  - Product dose omission issue [None]

NARRATIVE: CASE EVENT DATE: 20241118
